FAERS Safety Report 8334946-9 (Version None)
Quarter: 2012Q2

REPORT INFORMATION
  Report Type: 
  Country: None (occurrence: None)
  Receive Date: 20120503
  Receipt Date: 20120423
  Transmission Date: 20120825
  Serious: Yes (Other)
  Sender: FDA-Public Use
  Company Number: GB-JNJFOC-20120411551

PATIENT
  Sex: Male
  Weight: 80 kg

DRUGS (2)
  1. REMICADE [Suspect]
     Indication: PYODERMA GANGRENOSUM
     Route: 042
     Dates: start: 20080701, end: 20080820
  2. PREDNISOLONE [Concomitant]
     Indication: PYODERMA GANGRENOSUM
     Route: 048

REACTIONS (1)
  - MULTIPLE MYELOMA [None]
